FAERS Safety Report 7806715-7 (Version None)
Quarter: 2011Q4

REPORT INFORMATION
  Report Type: 
  Country: None (occurrence: None)
  Receive Date: 20111011
  Receipt Date: 20110930
  Transmission Date: 20120403
  Serious: Yes (Other)
  Sender: FDA-Public Use
  Company Number: US-JNJFOC-20111001023

PATIENT
  Sex: Female

DRUGS (9)
  1. QUESTRAN [Concomitant]
  2. MERCAPTOPURINE [Concomitant]
  3. FOLIC ACID [Concomitant]
  4. MACROBID [Concomitant]
  5. M.V.I. [Concomitant]
  6. LOMOTIL [Concomitant]
  7. REMICADE [Suspect]
     Indication: PRODUCT USED FOR UNKNOWN INDICATION
     Route: 042
     Dates: start: 20090601
  8. POTASSIUM [Concomitant]
  9. VITAMIN B-12 [Concomitant]

REACTIONS (3)
  - GASTROINTESTINAL HAEMORRHAGE [None]
  - METHAEMOGLOBINAEMIA [None]
  - HAEMOGLOBIN DECREASED [None]
